FAERS Safety Report 6088879-1 (Version None)
Quarter: 2009Q1

REPORT INFORMATION
  Report Type: 
  Country: None (occurrence: None)
  Receive Date: 20090224
  Receipt Date: 20090220
  Transmission Date: 20090719
  Serious: Yes (Life-Threatening, Hospitalization)
  Sender: FDA-Public Use
  Company Number: PHHY2009TR06432

PATIENT
  Age: 5 Year
  Sex: Male

DRUGS (2)
  1. TRILEPTAL [Suspect]
     Indication: EPILEPSY
     Dosage: 180 MG, BID (2 X 3 ML)
  2. TRILEPTAL [Suspect]
     Dosage: 480 MG, BID (2 X 8 ML)
     Route: 048

REACTIONS (6)
  - AGGRESSION [None]
  - DRUG PRESCRIBING ERROR [None]
  - DYSKINESIA [None]
  - FEELING ABNORMAL [None]
  - OVERDOSE [None]
  - TREMOR [None]
